FAERS Safety Report 22937369 (Version 2)
Quarter: 2023Q4

REPORT INFORMATION
  Report Type: Spontaneous
  Country: ES (occurrence: None)
  Receive Date: 20230913
  Receipt Date: 20231006
  Transmission Date: 20240110
  Serious: Yes (Life-Threatening, Other)
  Sender: FDA-Public Use
  Company Number: 2023A204797

PATIENT
  Sex: Male

DRUGS (1)
  1. SYMBICORT [Suspect]
     Active Substance: BUDESONIDE\FORMOTEROL FUMARATE DIHYDRATE
     Dosage: 320 UG, UNKNOWN UNKNOWN
     Route: 055

REACTIONS (3)
  - Near drowning [Recovered/Resolved]
  - Breath sounds abnormal [Recovered/Resolved]
  - Drug ineffective [Recovered/Resolved]
